FAERS Safety Report 4839917-2 (Version None)
Quarter: 2005Q4

REPORT INFORMATION
  Report Type: 
  Country: None (occurrence: None)
  Receive Date: 20051129
  Receipt Date: 20051124
  Transmission Date: 20060501
  Serious: Yes (Hospitalization)
  Sender: FDA-Public Use
  Company Number: IT-ROCHE-425907

PATIENT
  Age: 65 Year
  Sex: Female

DRUGS (5)
  1. XELODA [Suspect]
     Route: 048
     Dates: start: 20050908, end: 20050926
  2. LANOXIN [Concomitant]
  3. DILATREND [Concomitant]
     Route: 048
  4. LOSAPREX [Concomitant]
     Route: 048
  5. LASITONE [Concomitant]
     Route: 048

REACTIONS (4)
  - ABDOMINAL PAIN [None]
  - DYSPNOEA [None]
  - MYOCARDIAL INFARCTION [None]
  - PANCREATITIS [None]
